FAERS Safety Report 5827464-0 (Version None)
Quarter: 2008Q3

REPORT INFORMATION
  Report Type: 
  Country: None (occurrence: None)
  Receive Date: 20080730
  Receipt Date: 20080723
  Transmission Date: 20090109
  Serious: Yes (Other)
  Sender: FDA-Public Use
  Company Number: US-JNJCH-2008018629

PATIENT
  Age: 68 Year
  Sex: Female

DRUGS (1)
  1. LISTERINE WHITENING QUICK DISSOLVING STRIPS [Suspect]
     Indication: DRUG USE FOR UNKNOWN INDICATION
     Dosage: TEXT:AS DIRECTED 4 STRIPS DAILY
     Route: 048
     Dates: start: 20080713, end: 20080714

REACTIONS (4)
  - APHTHOUS STOMATITIS [None]
  - APPLICATION SITE BURN [None]
  - LIP SWELLING [None]
  - MOUTH ULCERATION [None]
